FAERS Safety Report 4978990-8 (Version None)
Quarter: 2006Q2

REPORT INFORMATION
  Report Type: 
  Country: None (occurrence: None)
  Receive Date: 20060421
  Receipt Date: 20060407
  Transmission Date: 20061013
  Serious: Yes (Other)
  Sender: FDA-Public Use
  Company Number: US-SANOFI-SYNTHELABO-F03200600071

PATIENT
  Sex: Female
  Weight: 54 kg

DRUGS (5)
  1. OXALIPLATIN [Suspect]
     Indication: RETROPERITONEAL CANCER
     Route: 042
     Dates: start: 20060329, end: 20060329
  2. TAXOTERE [Suspect]
     Indication: RETROPERITONEAL CANCER
     Route: 042
  3. FLUOROURACIL [Suspect]
     Indication: RETROPERITONEAL CANCER
     Route: 042
  4. TYLENOL W/ CODEINE NO. 3 [Concomitant]
     Dosage: 300-30 MG 1 TABLET EVERY 4 HOURS AS NEEDED
     Route: 048
  5. XANAX [Concomitant]
     Route: 048

REACTIONS (2)
  - DYSARTHRIA [None]
  - SPEECH DISORDER [None]
